FAERS Safety Report 8311841-2 (Version None)
Quarter: 2012Q2

REPORT INFORMATION
  Report Type: 
  Country: None (occurrence: None)
  Receive Date: 20120425
  Receipt Date: 20120423
  Transmission Date: 20120825
  Serious: Yes (Hospitalization, Other)
  Sender: FDA-Public Use
  Company Number: GB-PFIZER INC-2011202764

PATIENT
  Age: 88 Year
  Sex: Female

DRUGS (8)
  1. PIPERACILLIN AND TAZOBACTAM [Suspect]
     Dosage: 4.5 G, EVERY 8 HOURS
     Route: 042
     Dates: start: 20110524, end: 20110525
  2. ACETYLSALICYLIC ACID [Concomitant]
     Dosage: 75 MG, 1X/DAY
  3. PIPERACILLIN AND TAZOBACTAM [Suspect]
     Dosage: 4.5 G, EVERY 8 HOURS
     Route: 042
     Dates: start: 20110425, end: 20110428
  4. MEROPENEM [Suspect]
     Dosage: 2 G, EVERY 8 HOURS
     Route: 042
     Dates: start: 20110525, end: 20110530
  5. MEROPENEM [Suspect]
     Dosage: 2 G, EVERY 8 HOURS
     Route: 042
     Dates: start: 20110428, end: 20110505
  6. PIPERACILLIN AND TAZOBACTAM [Suspect]
     Indication: LOWER RESPIRATORY TRACT INFECTION
     Dosage: 4.5 G, EVERY 8 HOURS
     Route: 042
     Dates: start: 20110406, end: 20110411
  7. MEROPENEM [Suspect]
     Indication: LOWER RESPIRATORY TRACT INFECTION
     Dosage: 2 G, EVERY 8 HOURS
     Route: 042
     Dates: start: 20110514, end: 20110520
  8. AMOXICILLIN AND CLAVULANATE POTASSIUM [Suspect]
     Indication: GASTROINTESTINAL TUBE INSERTION
     Dosage: 1.2 G, UNK
     Route: 042
     Dates: start: 20110609, end: 20110609

REACTIONS (1)
  - CLOSTRIDIAL INFECTION [None]
